FAERS Safety Report 12691942 (Version 1)
Quarter: 2016Q3

REPORT INFORMATION
  Report Type: Spontaneous
  Country: US (occurrence: US)
  Receive Date: 20160827
  Receipt Date: 20160827
  Transmission Date: 20161109
  Serious: No
  Sender: FDA-Public Use
  Company Number: PHEH2016US021024

PATIENT
  Age: 19 Year
  Sex: Female

DRUGS (1)
  1. ILARIS [Suspect]
     Active Substance: CANAKINUMAB
     Dosage: UNK
     Route: 058
     Dates: start: 20131217, end: 20150517

REACTIONS (1)
  - Therapy non-responder [Unknown]

NARRATIVE: CASE EVENT DATE: 20131217
